FAERS Safety Report 4402360-4 (Version None)
Quarter: 2004Q3

REPORT INFORMATION
  Report Type: 
  Country: None (occurrence: None)
  Receive Date: 20040715
  Receipt Date: 20040629
  Transmission Date: 20050211
  Serious: Yes (Other)
  Sender: FDA-Public Use
  Company Number: 6914

PATIENT
  Sex: Female

DRUGS (1)
  1. SEPTOCAINE [Suspect]
     Indication: LOCAL ANAESTHESIA

REACTIONS (6)
  - DYSGEUSIA [None]
  - LIP DISCOLOURATION [None]
  - LIP DRY [None]
  - NERVE INJURY [None]
  - PAIN [None]
  - SWOLLEN TONGUE [None]
